FAERS Safety Report 9804386 (Version 1)
Quarter: 2014Q1

REPORT INFORMATION
  Report Type: Spontaneous
  Country: US (occurrence: US)
  Receive Date: 20140108
  Receipt Date: 20140108
  Transmission Date: 20141002
  Serious: Yes (Other)
  Sender: FDA-Public Use
  Company Number: US-ALEXION PHARMACEUTICALS INC.-A201304668

PATIENT
  Sex: Male
  Weight: 89.8 kg

DRUGS (7)
  1. SOLIRIS 300MG [Suspect]
     Indication: PAROXYSMAL NOCTURNAL HAEMOGLOBINURIA
     Dosage: 900 MG, Q2W
     Route: 042
  2. ASPIRIN [Concomitant]
     Dosage: 81 MG, QD
     Route: 048
  3. ATENOLOL [Concomitant]
     Dosage: 25 MG, BID
     Route: 048
  4. ATORVASTATIN [Concomitant]
     Dosage: 20 MG, QD
     Route: 048
  5. DICYCLOMINE [Concomitant]
     Dosage: UNK, PRN
     Route: 048
  6. OMEPRAZOLE [Concomitant]
     Dosage: 20 MG, QD
     Route: 048
  7. SUCRALFATE [Concomitant]
     Dosage: 400 MG, TID PRN
     Route: 048

REACTIONS (1)
  - Renal failure [Not Recovered/Not Resolved]
